FAERS Safety Report 16358942 (Version 2)
Quarter: 2019Q4

REPORT INFORMATION
  Report Type: Spontaneous
  Country: US (occurrence: US)
  Receive Date: 20190527
  Receipt Date: 20191202
  Transmission Date: 20200122
  Serious: No
  Sender: FDA-Public Use
  Company Number: US-SA-2018SA388223

PATIENT
  Age: 63 Year
  Sex: Female

DRUGS (2)
  1. FABRAZYME [Suspect]
     Active Substance: AGALSIDASE BETA
     Indication: FABRY^S DISEASE
     Dosage: 100 MG, QOW
     Route: 041
     Dates: start: 20120821
  2. FABRAZYME [Suspect]
     Active Substance: AGALSIDASE BETA
     Dosage: 100 MG, QOW
     Route: 041

REACTIONS (3)
  - Product dose omission [Unknown]
  - Poor venous access [Unknown]
  - Malaise [Unknown]
